FAERS Safety Report 6551500-X (Version None)
Quarter: 2010Q1

REPORT INFORMATION
  Report Type: 
  Country: None (occurrence: None)
  Receive Date: 20100126
  Receipt Date: 20100117
  Transmission Date: 20100710
  Serious: Yes (Disabling)
  Sender: FDA-Public Use
  Company Number: DZ-ASTRAZENECA-2010SE02220

PATIENT
  Age: 40 Year
  Weight: 75 kg

DRUGS (1)
  1. CANDESARTAN CILEXETIL/HYDROCHLOROTHIAZIDE (ATACAND HCT) [Suspect]
     Indication: HYPERTENSION
     Dosage: 16 + 12.5 MG; 1 TABLET DAILY
     Route: 048
     Dates: start: 20091229, end: 20100107

REACTIONS (3)
  - ERECTILE DYSFUNCTION [None]
  - OCULAR HYPERAEMIA [None]
  - VISION BLURRED [None]
